FAERS Safety Report 11971334 (Version 4)
Quarter: 2016Q1

REPORT INFORMATION
  Report Type: Spontaneous
  Country: JP (occurrence: JP)
  Receive Date: 20160128
  Receipt Date: 20160307
  Transmission Date: 20160526
  Serious: Yes (Life-Threatening, Hospitalization, Other)
  Sender: FDA-Public Use
  Company Number: JP-JNJFOC-20160119404

PATIENT
  Age: 15 Year
  Sex: Male
  Weight: 27 kg

DRUGS (6)
  1. DEPAS [Suspect]
     Active Substance: ETIZOLAM
     Indication: INSOMNIA
     Route: 048
     Dates: start: 20151027, end: 20160121
  2. SULPIRIDE [Concomitant]
     Active Substance: SULPIRIDE
     Route: 065
     Dates: start: 20151027
  3. DESYREL [Concomitant]
     Active Substance: TRAZODONE HYDROCHLORIDE
     Route: 048
     Dates: start: 20151031
  4. WYPAX [Concomitant]
     Active Substance: LORAZEPAM
     Indication: ANXIETY
     Dosage: AS NEEDED.
     Route: 048
     Dates: start: 20151110, end: 20160121
  5. RISPERDAL [Suspect]
     Active Substance: RISPERIDONE
     Indication: ADJUSTMENT DISORDER
     Route: 048
     Dates: start: 20151110
  6. WYPAX [Concomitant]
     Active Substance: LORAZEPAM
     Indication: ADJUSTMENT DISORDER
     Dosage: AS NEEDED.
     Route: 048
     Dates: start: 20151110, end: 20160121

REACTIONS (5)
  - Hypovolaemic shock [Not Recovered/Not Resolved]
  - Off label use [Unknown]
  - Diabetic ketoacidosis [Recovering/Resolving]
  - Drug administered to patient of inappropriate age [Unknown]
  - Product use issue [Unknown]

NARRATIVE: CASE EVENT DATE: 20160121
